FAERS Safety Report 5005989-8 (Version None)
Quarter: 2006Q1

REPORT INFORMATION
  Report Type: 
  Country: None (occurrence: None)
  Receive Date: 20060320
  Receipt Date: 20050203
  Transmission Date: 20060701
  Serious: Yes (Other)
  Sender: FDA-Public Use
  Company Number: 2005-02-0459

PATIENT
  Sex: Male

DRUGS (2)
  1. PEG-INTRON [Suspect]
     Indication: HEPATITIS C
     Dates: start: 20040101
  2. RIBAVIRIN [Suspect]
     Indication: HEPATITIS C
     Dates: start: 20040101

REACTIONS (2)
  - HALLUCINATION [None]
  - PSYCHOTIC DISORDER [None]
